FAERS Safety Report 11565926 (Version 1)
Quarter: 2015Q3

REPORT INFORMATION
  Report Type: Report from Study
  Country: CA (occurrence: CA)
  Receive Date: 20150928
  Receipt Date: 20150928
  Transmission Date: 20151125
  Serious: Yes (Other)
  Sender: FDA-Public Use
  Company Number: CA-ROCHE-1636897

PATIENT
  Age: 74 Year
  Sex: Female

DRUGS (3)
  1. MAVIK [Concomitant]
     Active Substance: TRANDOLAPRIL
  2. CRESTOR [Concomitant]
     Active Substance: ROSUVASTATIN CALCIUM
  3. ACTEMRA [Suspect]
     Active Substance: TOCILIZUMAB
     Indication: RHEUMATOID ARTHRITIS
     Route: 042
     Dates: start: 20150903

REACTIONS (4)
  - Granuloma [Unknown]
  - Pruritus [Not Recovered/Not Resolved]
  - Tuberculosis [Unknown]
  - Rash pruritic [Unknown]

NARRATIVE: CASE EVENT DATE: 20150909
